FAERS Safety Report 5457113-5 (Version None)
Quarter: 2007Q3

REPORT INFORMATION
  Report Type: 
  Country: None (occurrence: None)
  Receive Date: 20070918
  Receipt Date: 20070911
  Transmission Date: 20080115
  Serious: No
  Sender: FDA-Public Use
  Company Number: US-ASTRAZENECA-2007UW00789

PATIENT
  Age: 44 Year
  Sex: Female
  Weight: 38.2 kg

DRUGS (5)
  1. SEROQUEL [Suspect]
     Indication: GENERALISED ANXIETY DISORDER
     Route: 048
  2. SEROQUEL [Suspect]
     Indication: SLEEP DISORDER
     Route: 048
  3. REMERON [Concomitant]
  4. MEGACE [Concomitant]
  5. CLONOPIN [Concomitant]

REACTIONS (8)
  - DISORIENTATION [None]
  - DIZZINESS [None]
  - DRUG INEFFECTIVE [None]
  - FEELING ABNORMAL [None]
  - INCOHERENT [None]
  - MEMORY IMPAIRMENT [None]
  - OVERDOSE [None]
  - TREMOR [None]
